FAERS Safety Report 6124062-9 (Version None)
Quarter: 2009Q1

REPORT INFORMATION
  Report Type: 
  Country: None (occurrence: None)
  Receive Date: 20090319
  Receipt Date: 20090313
  Transmission Date: 20090719
  Serious: Yes (Life-Threatening, Hospitalization)
  Sender: FDA-Public Use
  Company Number: PHHY2009FR02209

PATIENT
  Sex: Female

DRUGS (2)
  1. FEMARA [Suspect]
     Indication: BREAST CANCER
     Dosage: 1 TABLET DAILY
     Route: 048
     Dates: start: 20070201, end: 20081201
  2. SEROPRAM [Concomitant]
     Indication: HYPOTHYROIDISM

REACTIONS (9)
  - DIFFUSE ALVEOLAR DAMAGE [None]
  - HYPOXIA [None]
  - INTERSTITIAL LUNG DISEASE [None]
  - LUNG DISORDER [None]
  - MECHANICAL VENTILATION [None]
  - ORGANISING PNEUMONIA [None]
  - PYREXIA [None]
  - RESPIRATORY DISTRESS [None]
  - THORACOTOMY [None]
